FAERS Safety Report 8142448-8 (Version None)
Quarter: 2012Q1

REPORT INFORMATION
  Report Type: 
  Country: None (occurrence: None)
  Receive Date: 20120216
  Receipt Date: 20120209
  Transmission Date: 20120608
  Serious: Yes (Hospitalization)
  Sender: FDA-Public Use
  Company Number: DK-JNJFOC-20111007718

PATIENT
  Sex: Female

DRUGS (7)
  1. SIMPONI [Suspect]
     Indication: RHEUMATOID ARTHRITIS
     Route: 058
     Dates: start: 20111004
  2. SIMPONI [Suspect]
     Route: 058
     Dates: start: 20110622
  3. SIMPONI [Suspect]
     Route: 058
     Dates: start: 20110322
  4. SIMPONI [Suspect]
     Route: 058
     Dates: start: 20101215
  5. LEFLUNOMIDE [Concomitant]
     Indication: RHEUMATOID ARTHRITIS
     Dates: start: 20100901, end: 20110322
  6. FORMOTEROL FUMARATE [Concomitant]
     Indication: DYSPNOEA
     Route: 055
  7. LEFLUNOMIDE [Concomitant]
     Dates: start: 20100830, end: 20100901

REACTIONS (2)
  - INAPPROPRIATE SCHEDULE OF DRUG ADMINISTRATION [None]
  - CEREBELLAR INFARCTION [None]
